FAERS Safety Report 23546996 (Version 1)
Quarter: 2024Q1

REPORT INFORMATION
  Report Type: Spontaneous
  Country: US (occurrence: US)
  Receive Date: 20240221
  Receipt Date: 20240221
  Transmission Date: 20240410
  Serious: Yes (Other)
  Sender: FDA-Public Use
  Company Number: US-BoehringerIngelheim-2024-BI-009028

PATIENT
  Age: 58 Year
  Sex: Female

DRUGS (3)
  1. ATROVENT HFA [Suspect]
     Active Substance: IPRATROPIUM BROMIDE
     Indication: Asthma
     Route: 055
     Dates: start: 1983
  2. FLOMAX [Suspect]
     Active Substance: TAMSULOSIN HYDROCHLORIDE
     Indication: Upper respiratory tract infection
     Dates: start: 202312
  3. METOPROLOL [Suspect]
     Active Substance: METOPROLOL
     Indication: Supraventricular tachycardia

REACTIONS (6)
  - Supraventricular tachycardia [Unknown]
  - Candida infection [Recovered/Resolved]
  - Upper respiratory tract infection [Unknown]
  - Off label use [Unknown]
  - Hypotension [Unknown]
  - Tachycardia [Unknown]

NARRATIVE: CASE EVENT DATE: 20200101
